FAERS Safety Report 17446958 (Version 2)
Quarter: 2020Q2

REPORT INFORMATION
  Report Type: Report from Study
  Country: US (occurrence: US)
  Receive Date: 20200221
  Receipt Date: 20200428
  Transmission Date: 20200713
  Serious: Yes (Hospitalization, Other)
  Sender: FDA-Public Use
  Company Number: US-AMGEN-USASL2020027681

PATIENT
  Sex: Male

DRUGS (2)
  1. ENBREL [Suspect]
     Active Substance: ETANERCEPT
     Indication: PSORIASIS
  2. ENBREL [Suspect]
     Active Substance: ETANERCEPT
     Indication: PSORIATIC ARTHROPATHY
     Dosage: UNK
     Route: 065
     Dates: start: 2004, end: 20200207

REACTIONS (7)
  - Therapeutic product effect decreased [Unknown]
  - Blood pressure abnormal [Unknown]
  - Psoriasis [Unknown]
  - Sepsis [Unknown]
  - Synovial cyst [Unknown]
  - Hip arthroplasty [Unknown]
  - Adverse event [Unknown]

NARRATIVE: CASE EVENT DATE: 2018
